FAERS Safety Report 13906106 (Version 1)
Quarter: 2017Q3

REPORT INFORMATION
  Report Type: Other
  Country: IT (occurrence: IT)
  Receive Date: 20170825
  Receipt Date: 20170825
  Transmission Date: 20171127
  Serious: Yes (Other)
  Sender: FDA-Public Use
  Company Number: IT-APOTEX-2017AP016361

PATIENT
  Age: 52 Year
  Sex: Female

DRUGS (3)
  1. TAMOXIFEN CITRATE. [Suspect]
     Active Substance: TAMOXIFEN CITRATE
     Indication: BREAST CANCER
     Dosage: UNK
     Route: 048
     Dates: start: 201202, end: 201207
  2. ANASTROZOLE. [Suspect]
     Active Substance: ANASTROZOLE
     Indication: BREAST CANCER
     Dosage: 1 MG, QD
     Route: 048
     Dates: start: 201511
  3. FULVESTRANT. [Suspect]
     Active Substance: FULVESTRANT
     Indication: BREAST CANCER
     Dosage: 500 MG, DAILY
     Route: 030
     Dates: start: 201511

REACTIONS (4)
  - Lymphadenopathy [Unknown]
  - Off label use [Unknown]
  - Drug intolerance [Unknown]
  - Neoplasm recurrence [Unknown]
